FAERS Safety Report 13085593 (Version 1)
Quarter: 2017Q1

REPORT INFORMATION
  Report Type: Spontaneous
  Country: US (occurrence: US)
  Receive Date: 20170104
  Receipt Date: 20170104
  Transmission Date: 20170428
  Serious: No
  Sender: FDA-Public Use
  Company Number: None

PATIENT

DRUGS (1)
  1. GENERIC LEVOTHYROXINE [Suspect]
     Active Substance: LEVOTHYROXINE

REACTIONS (3)
  - Blood thyroid stimulating hormone abnormal [None]
  - Fatigue [None]
  - Product substitution issue [None]
